FAERS Safety Report 18194842 (Version 5)
Quarter: 2021Q1

REPORT INFORMATION
  Report Type: Report from Study
  Country: US (occurrence: US)
  Receive Date: 20200826
  Receipt Date: 20210305
  Transmission Date: 20210419
  Serious: No
  Sender: FDA-Public Use
  Company Number: US-B.I. PHARMACEUTICALS,INC./RIDGEFIELD-2020-US-043692

PATIENT
  Age: 76 Year
  Sex: Male

DRUGS (4)
  1. INSULIN [Concomitant]
     Active Substance: INSULIN NOS
     Indication: DIABETES MELLITUS
  2. OFEV [Suspect]
     Active Substance: NINTEDANIB
     Indication: IDIOPATHIC PULMONARY FIBROSIS
     Dosage: 100MG QD
     Route: 048
     Dates: start: 20200807, end: 20210122
  3. OFEV [Suspect]
     Active Substance: NINTEDANIB
     Dosage: 100MG QD
     Route: 048
  4. OFEV [Suspect]
     Active Substance: NINTEDANIB
     Dosage: 1 CAP BID
     Route: 048

REACTIONS (6)
  - Abdominal pain upper [Recovered/Resolved]
  - Immune thrombocytopenia [Not Recovered/Not Resolved]
  - Contusion [Unknown]
  - Thrombocytopenia [Unknown]
  - Platelet count decreased [Not Recovered/Not Resolved]
  - Bone marrow disorder [Not Recovered/Not Resolved]

NARRATIVE: CASE EVENT DATE: 202008
